FAERS Safety Report 23331628 (Version 1)
Quarter: 2023Q4

REPORT INFORMATION
  Report Type: Spontaneous
  Country: US (occurrence: US)
  Receive Date: 20231222
  Receipt Date: 20231222
  Transmission Date: 20240110
  Serious: No
  Sender: FDA-Public Use
  Company Number: US-TEVA-VS-3137594

PATIENT

DRUGS (9)
  1. DICLOFENAC [Suspect]
     Active Substance: DICLOFENAC
     Indication: Diabetes mellitus
  2. IMIPRAMINE HYDROCHLORIDE [Concomitant]
     Active Substance: IMIPRAMINE HYDROCHLORIDE
  3. OMEPRAZOLE [Concomitant]
     Active Substance: OMEPRAZOLE
  4. LEXAPRO [Concomitant]
     Active Substance: ESCITALOPRAM OXALATE
  5. AMBRISENTAN [Concomitant]
     Active Substance: AMBRISENTAN
  6. LOSARTAN POTASSIUM [Concomitant]
     Active Substance: LOSARTAN POTASSIUM
  7. AMBIEN [Concomitant]
     Active Substance: ZOLPIDEM TARTRATE
  8. TYLENOL EXTRA STRENGTH FO [Concomitant]
  9. PROLIA [Concomitant]
     Active Substance: DENOSUMAB

REACTIONS (1)
  - Drug ineffective [Unknown]
